FAERS Safety Report 7331573-7 (Version None)
Quarter: 2011Q1

REPORT INFORMATION
  Report Type: 
  Country: None (occurrence: None)
  Receive Date: 20110228
  Receipt Date: 20110228
  Transmission Date: 20110831
  Serious: Yes (Other)
  Sender: FDA-Public Use
  Company Number: None

PATIENT
  Sex: Female
  Weight: 7.2576 kg

DRUGS (1)
  1. ATORVASTATIN 20MG LIPITOR [Suspect]

REACTIONS (4)
  - DYSPNOEA [None]
  - INFLAMMATION [None]
  - INTERSTITIAL LUNG DISEASE [None]
  - PAIN [None]
